FAERS Safety Report 9692319 (Version 1)
Quarter: 2013Q4

REPORT INFORMATION
  Report Type: Report from Study
  Country: JP (occurrence: JP)
  Receive Date: 20131118
  Receipt Date: 20131118
  Transmission Date: 20140711
  Serious: Yes (Death, Other)
  Sender: FDA-Public Use
  Company Number: JP-ROCHE-1300212

PATIENT
  Sex: 0

DRUGS (4)
  1. RITUXIMAB [Suspect]
     Indication: DIFFUSE LARGE B-CELL LYMPHOMA
     Dosage: 21 DAY CYCLE; NEXT CYCLE ADMINISTERED WHEN THE ABSOLUTE NEUTROPHIL COUNT RECOVERS TO BE } 1.5 X 10^9
     Route: 065
  2. CYCLOPHOSPHAMIDE [Suspect]
     Indication: DIFFUSE LARGE B-CELL LYMPHOMA
     Route: 065
  3. DOXORUBICIN [Suspect]
     Indication: DIFFUSE LARGE B-CELL LYMPHOMA
     Route: 065
  4. VINCRISTINE [Suspect]
     Indication: DIFFUSE LARGE B-CELL LYMPHOMA
     Dosage: MAXIMUM: 2 MG
     Route: 065

REACTIONS (12)
  - Febrile neutropenia [Fatal]
  - Pneumonia aspiration [Fatal]
  - Hepatitis B [Fatal]
  - Acute myeloid leukaemia [Fatal]
  - Neutropenia [Unknown]
  - Anaemia [Unknown]
  - Thrombocytopenia [Unknown]
  - Transaminases abnormal [Unknown]
  - Neurotoxicity [Unknown]
  - Nausea [Unknown]
  - Diarrhoea [Unknown]
  - Blood creatinine abnormal [Unknown]
